FAERS Safety Report 4771957-4 (Version None)
Quarter: 2005Q3

REPORT INFORMATION
  Report Type: 
  Country: None (occurrence: None)
  Receive Date: 20050916
  Receipt Date: 20050614
  Transmission Date: 20060218
  Serious: Yes (Death, Hospitalization)
  Sender: FDA-Public Use
  Company Number: PHBS2005JP08497

PATIENT
  Age: 76 Year
  Sex: Male

DRUGS (7)
  1. GLEEVEC [Suspect]
     Indication: ACUTE LYMPHOCYTIC LEUKAEMIA
     Dosage: 400 MG/DAY
     Route: 048
     Dates: start: 20050407, end: 20050421
  2. GLEEVEC [Suspect]
     Dosage: 200 MG/D
     Route: 048
     Dates: start: 20050601, end: 20050614
  3. GLEEVEC [Suspect]
     Dosage: 200 MG/D
     Route: 048
     Dates: start: 20050628, end: 20050703
  4. ENDOXAN [Concomitant]
     Dates: start: 20050401
  5. DAUNOMYCIN [Concomitant]
     Dates: start: 20050401
  6. ONCOVIN [Concomitant]
     Dates: start: 20050401
  7. METHOTREXATE [Concomitant]

REACTIONS (7)
  - ABDOMINAL PAIN UPPER [None]
  - BREAST DISORDER [None]
  - HEPATITIS [None]
  - NIPPLE PAIN [None]
  - NIPPLE SWELLING [None]
  - PRURITUS [None]
  - SEPTIC SHOCK [None]
